FAERS Safety Report 11844084 (Version 1)
Quarter: 2015Q4

REPORT INFORMATION
  Report Type: Report from Study
  Country: CO (occurrence: CO)
  Receive Date: 20151217
  Receipt Date: 20151217
  Transmission Date: 20160305
  Serious: Yes (Hospitalization, Other)
  Sender: FDA-Public Use
  Company Number: CO-BRISTOL-MYERS SQUIBB COMPANY-BMS-2015-086072

PATIENT
  Age: 54 Year
  Sex: Female

DRUGS (1)
  1. CETUXIMAB [Suspect]
     Active Substance: CETUXIMAB
     Indication: COLORECTAL CANCER METASTATIC
     Dosage: UNK, Q2WK
     Route: 042
     Dates: start: 201506, end: 201511

REACTIONS (2)
  - Ileostomy closure [Recovering/Resolving]
  - Ureteral disorder [Recovering/Resolving]

NARRATIVE: CASE EVENT DATE: 20151123
